FAERS Safety Report 19386574 (Version 3)
Quarter: 2021Q2

REPORT INFORMATION
  Report Type: Spontaneous
  Country: EE (occurrence: EE)
  Receive Date: 20210608
  Receipt Date: 20210621
  Transmission Date: 20210717
  Serious: Yes (Other)
  Sender: FDA-Public Use
  Company Number: EE-ROCHE-2843609

PATIENT
  Age: 67 Year
  Sex: Male
  Weight: 84 kg

DRUGS (4)
  1. HEMLIBRA [Suspect]
     Active Substance: EMICIZUMAB-KXWH
     Indication: HAEMOPHILIA
     Route: 058
     Dates: start: 202001
  2. TREXAN (ESTONIA) [Concomitant]
     Active Substance: METHOTREXATE
  3. PLENDIL [Concomitant]
     Active Substance: FELODIPINE
     Dosage: 5 MG X 1
  4. RENITEC [Concomitant]
     Dosage: 10 MG X 1

REACTIONS (2)
  - Skin neoplasm excision [Unknown]
  - Post procedural haemorrhage [Unknown]

NARRATIVE: CASE EVENT DATE: 20210507
